FAERS Safety Report 23365590 (Version 1)
Quarter: 2024Q1

REPORT INFORMATION
  Report Type: Spontaneous
  Country: NL (occurrence: None)
  Receive Date: 20240104
  Receipt Date: 20240104
  Transmission Date: 20240410
  Serious: Yes (Hospitalization)
  Sender: FDA-Public Use
  Company Number: 2023A294158

PATIENT
  Age: 80 Year
  Sex: Female
  Weight: 65 kg

DRUGS (6)
  1. DAPAGLIFLOZIN [Suspect]
     Active Substance: DAPAGLIFLOZIN
     Indication: Cardiac failure
     Dosage: 1 X PER DAY 1 PIECE
     Dates: start: 20220601, end: 20231217
  2. APIXABAN [Concomitant]
     Active Substance: APIXABAN
     Dosage: UNKNOWN
  3. DIGOXIN [Concomitant]
     Active Substance: DIGOXIN
     Dosage: TABLET, 0,0625 MG (MILLIGRAM) UNKNOWN
  4. ATENOLOL [Concomitant]
     Active Substance: ATENOLOL
     Dosage: TABLET, 50 MG (MILLIGRAM) UNKNOWN
  5. SPIRONOLACTONE [Concomitant]
     Active Substance: SPIRONOLACTONE
     Dosage: TABLET, 12,5 MG (MILLIGRAM)12.5MG UNKNOWN
  6. BUMETANIDE [Concomitant]
     Active Substance: BUMETANIDE
     Dosage: TABLET, 1 MG (MILLIGRAM)

REACTIONS (2)
  - Dizziness [Not Recovered/Not Resolved]
  - Urosepsis [Recovering/Resolving]
